FAERS Safety Report 7079454-0 (Version None)
Quarter: 2010Q4

REPORT INFORMATION
  Report Type: 
  Country: None (occurrence: None)
  Receive Date: 20101102
  Receipt Date: 20101029
  Transmission Date: 20110411
  Serious: Yes (Hospitalization)
  Sender: FDA-Public Use
  Company Number: SE-BRISTOL-MYERS SQUIBB COMPANY-15361512

PATIENT
  Age: 62 Year
  Sex: Female
  Weight: 62 kg

DRUGS (6)
  1. CISPLATIN [Suspect]
     Indication: NON-SMALL CELL LUNG CANCER
     Route: 042
     Dates: start: 20101006, end: 20101006
  2. PEMETREXED DISODIUM [Suspect]
     Indication: NON-SMALL CELL LUNG CANCER
     Dosage: VIAL;
     Route: 042
     Dates: start: 20101006, end: 20101006
  3. BEVACIZUMAB [Suspect]
     Indication: NON-SMALL CELL LUNG CANCER
     Route: 042
     Dates: start: 20101006, end: 20101006
  4. FOLIC ACID [Concomitant]
     Dates: start: 20100928
  5. VITAMIN B-12 [Concomitant]
     Dates: start: 20100928
  6. DEXAMETHASONE [Concomitant]
     Dates: start: 20101005, end: 20101007

REACTIONS (2)
  - ATRIAL FIBRILLATION [None]
  - THROMBOSIS [None]
